FAERS Safety Report 4305496-1 (Version None)
Quarter: 2004Q1

REPORT INFORMATION
  Report Type: 
  Country: None (occurrence: None)
  Receive Date: 20040226
  Receipt Date: 20031104
  Transmission Date: 20041129
  Serious: No
  Sender: FDA-Public Use
  Company Number: US-BRISTOL-MYERS SQUIBB COMPANY-12426482

PATIENT
  Age: 55 Year
  Sex: Female
  Weight: 109 kg

DRUGS (2)
  1. ABILIFY [Suspect]
     Indication: SCHIZOPHRENIA
     Dosage: INITIALLY ON 15 MG/DAY; INCREASED TO 20 MG/DAY; THEN BACK TO 15 MG/DAY
     Route: 048
  2. XANAX [Concomitant]

REACTIONS (1)
  - SOMNOLENCE [None]
